FAERS Safety Report 8596095-4 (Version None)
Quarter: 2012Q3

REPORT INFORMATION
  Report Type: 
  Country: None (occurrence: None)
  Receive Date: 20120815
  Receipt Date: 20120806
  Transmission Date: 20120928
  Serious: Yes (Other)
  Sender: FDA-Public Use
  Company Number: US-ROCHE-1034646

PATIENT
  Sex: Female
  Weight: 103.06 kg

DRUGS (1)
  1. ACCUTANE [Suspect]
     Indication: PRODUCT USED FOR UNKNOWN INDICATION
     Dates: start: 19800101

REACTIONS (8)
  - DEPRESSION [None]
  - IRRITABLE BOWEL SYNDROME [None]
  - PERIRECTAL ABSCESS [None]
  - SUICIDAL IDEATION [None]
  - INFLAMMATORY BOWEL DISEASE [None]
  - ANXIETY [None]
  - CROHN'S DISEASE [None]
  - HAEMORRHOIDS [None]
